FAERS Safety Report 7721902-4 (Version None)
Quarter: 2011Q3

REPORT INFORMATION
  Report Type: 
  Country: None (occurrence: None)
  Receive Date: 20110831
  Receipt Date: 20110815
  Transmission Date: 20111222
  Serious: Yes (Hospitalization)
  Sender: FDA-Public Use
  Company Number: NZ-B.I. PHARMACEUTICALS,INC./RIDGEFIELD-2011-AU-01034AU

PATIENT
  Sex: Male
  Weight: 89 kg

DRUGS (7)
  1. SIMVASTATIN [Concomitant]
  2. ALLOPURINOL [Concomitant]
  3. FUROSEMIDE [Concomitant]
  4. PRADAXA [Suspect]
     Indication: ATRIAL FIBRILLATION
     Dosage: 220 MG
     Route: 048
     Dates: start: 20110723, end: 20110801
  5. FELODUR [Concomitant]
  6. LOSARTAN [Concomitant]
  7. DIGOXIN [Concomitant]

REACTIONS (2)
  - RECTAL HAEMORRHAGE [None]
  - CEREBROVASCULAR ACCIDENT [None]
